FAERS Safety Report 8349907-3 (Version None)
Quarter: 2012Q1

REPORT INFORMATION
  Report Type: 
  Country: None (occurrence: None)
  Receive Date: 20120315
  Receipt Date: 20110119
  Transmission Date: 20120608
  Serious: No
  Sender: FDA-Public Use
  Company Number: PHHY2010US89770

PATIENT
  Age: 47 Year
  Sex: Female

DRUGS (4)
  1. NEURONTIN [Concomitant]
  2. GILENYA [Suspect]
     Dosage: 0.5 MG, QD, ORAL
     Route: 048
     Dates: start: 20101229
  3. RANAFLED [Concomitant]
  4. BACLOFEN [Concomitant]

REACTIONS (5)
  - DIPLOPIA [None]
  - VISUAL ACUITY TESTS ABNORMAL [None]
  - DIZZINESS [None]
  - FEELING ABNORMAL [None]
  - VOMITING [None]
